FAERS Safety Report 15562423 (Version 2)
Quarter: 2018Q4

REPORT INFORMATION
  Report Type: Report from Study
  Country: AU (occurrence: AU)
  Receive Date: 20181029
  Receipt Date: 20181213
  Transmission Date: 20190205
  Serious: Yes (Hospitalization, Other)
  Sender: FDA-Public Use
  Company Number: AU-AMGEN-AUSCT2018149469

PATIENT
  Age: 63 Year
  Sex: Male
  Weight: 75 kg

DRUGS (16)
  1. ARA-C [Suspect]
     Active Substance: CYTARABINE
     Dosage: 100 MG, UNK
     Route: 037
     Dates: start: 20180921
  2. BLINATUMOMAB [Suspect]
     Active Substance: BLINATUMOMAB
     Dosage: 28 MUG, UNK
     Route: 042
     Dates: start: 20180908
  3. MTX [Suspect]
     Active Substance: METHOTREXATE SODIUM
     Dosage: 400 MG, UNK
     Route: 042
     Dates: start: 20180915
  4. MTX [Suspect]
     Active Substance: METHOTREXATE SODIUM
     Dosage: 1600 MG, UNK
     Route: 042
     Dates: start: 20180915
  5. ARA-C [Suspect]
     Active Substance: CYTARABINE
     Indication: ACUTE LYMPHOCYTIC LEUKAEMIA
     Dosage: 100 MG, UNK
     Route: 037
     Dates: start: 20180914
  6. METHYLPREDNISOLONE. [Suspect]
     Active Substance: METHYLPREDNISOLONE
     Dosage: 300 MG, UNK
     Route: 042
     Dates: start: 20180917
  7. A-HYDROCORT [Suspect]
     Active Substance: HYDROCORTISONE SODIUM SUCCINATE
     Indication: ACUTE LYMPHOCYTIC LEUKAEMIA
     Dosage: 100 MG, UNK
     Route: 037
     Dates: start: 20180914
  8. A-HYDROCORT [Suspect]
     Active Substance: HYDROCORTISONE SODIUM SUCCINATE
     Dosage: 100 MG, UNK
     Route: 037
     Dates: start: 20180921
  9. METHYLPREDNISOLONE. [Suspect]
     Active Substance: METHYLPREDNISOLONE
     Indication: ACUTE LYMPHOCYTIC LEUKAEMIA
     Dosage: 300 MG, UNK
     Route: 042
     Dates: start: 20180915
  10. MTX [Suspect]
     Active Substance: METHOTREXATE SODIUM
     Dosage: 12 MG, UNK
     Route: 037
     Dates: start: 20180921
  11. ARA-C [Suspect]
     Active Substance: CYTARABINE
     Dosage: 6000 MG, UNK
     Route: 042
     Dates: start: 20180915
  12. BLINATUMOMAB [Suspect]
     Active Substance: BLINATUMOMAB
     Indication: ACUTE LYMPHOCYTIC LEUKAEMIA
     Dosage: 0.9 MUG, UNK
     Route: 042
     Dates: start: 20180811
  13. MTX [Suspect]
     Active Substance: METHOTREXATE SODIUM
     Dosage: 400 MG, UNK
     Route: 042
     Dates: start: 20180917
  14. MTX [Suspect]
     Active Substance: METHOTREXATE SODIUM
     Dosage: 1600 MG, UNK
     Route: 042
     Dates: start: 20180917
  15. MTX [Suspect]
     Active Substance: METHOTREXATE SODIUM
     Indication: ACUTE LYMPHOCYTIC LEUKAEMIA
     Dosage: 12 MG, UNK
     Route: 037
     Dates: start: 20180914
  16. ARA-C [Suspect]
     Active Substance: CYTARABINE
     Dosage: 6000 MG, UNK
     Route: 042
     Dates: start: 20180917

REACTIONS (1)
  - Myelopathy [Not Recovered/Not Resolved]

NARRATIVE: CASE EVENT DATE: 20181016
